FAERS Safety Report 12974973 (Version 6)
Quarter: 2021Q4

REPORT INFORMATION
  Report Type: Spontaneous
  Country: US (occurrence: US)
  Receive Date: 20161125
  Receipt Date: 20211126
  Transmission Date: 20220303
  Serious: No
  Sender: FDA-Public Use
  Company Number: US-BIOGEN-2016BI00320490

PATIENT
  Sex: Female

DRUGS (9)
  1. AVONEX [Suspect]
     Active Substance: INTERFERON BETA-1A
     Indication: Multiple sclerosis
     Route: 030
     Dates: start: 201601
  2. AVONEX [Suspect]
     Active Substance: INTERFERON BETA-1A
  3. AVONEX [Suspect]
     Active Substance: INTERFERON BETA-1A
  4. AVONEX [Suspect]
     Active Substance: INTERFERON BETA-1A
  5. AVONEX PEN [Suspect]
     Active Substance: INTERFERON BETA-1A
     Indication: Multiple sclerosis
     Route: 065
     Dates: start: 20140929
  6. AVONEX PEN [Suspect]
     Active Substance: INTERFERON BETA-1A
  7. AVONEX PEN [Suspect]
     Active Substance: INTERFERON BETA-1A
  8. AVONEX PEN [Suspect]
     Active Substance: INTERFERON BETA-1A
  9. AMOXICILLIN [Concomitant]
     Active Substance: AMOXICILLIN
     Indication: Sinusitis
     Route: 065

REACTIONS (3)
  - Off label use [Unknown]
  - Pyrexia [Not Recovered/Not Resolved]
  - Sinusitis [Not Recovered/Not Resolved]
